FAERS Safety Report 5775531-2 (Version None)
Quarter: 2008Q2

REPORT INFORMATION
  Report Type: 
  Country: None (occurrence: None)
  Receive Date: 20080601
  Receipt Date: 20080124
  Transmission Date: 20081010
  Serious: No
  Sender: FDA-Public Use
  Company Number: US200711004056

PATIENT
  Age: 63 Year
  Sex: Male

DRUGS (10)
  1. BYETTA [Suspect]
     Indication: TYPE 2 DIABETES MELLITUS
     Dosage: 5 UG, 2/D, SUBCUTANEOUS
     Route: 058
     Dates: start: 20071026
  2. GLUCOVANCE [Concomitant]
  3. BISOPROLOL FUMARATE [Concomitant]
  4. PLAVIX [Concomitant]
  5. FOLATE (FOLIC ACID) [Concomitant]
  6. LISINOPRIL /HCTZ (HYDROCHLOROTHIAZIDE, LISINOPRIL) [Concomitant]
  7. ACTOS [Concomitant]
  8. ASPIRIN [Concomitant]
  9. IMODIUM [Concomitant]
  10. CRESTOR [Concomitant]

REACTIONS (2)
  - BLOOD GLUCOSE INCREASED [None]
  - HEART RATE INCREASED [None]
